FAERS Safety Report 19702720 (Version 1)
Quarter: 2021Q3

REPORT INFORMATION
  Report Type: Spontaneous
  Country: US (occurrence: US)
  Receive Date: 20210815
  Receipt Date: 20210815
  Transmission Date: 20211014
  Serious: No
  Sender: FDA-Public Use
  Company Number: US-BAUSCH-BL-2021-026850

PATIENT
  Sex: Male

DRUGS (1)
  1. PENICILLAMINE [Suspect]
     Active Substance: PENICILLAMINE
     Indication: PRODUCT USED FOR UNKNOWN INDICATION
     Dosage: 250 (UNIT, UNSPECIFIED),
     Route: 065

REACTIONS (4)
  - Arthralgia [Unknown]
  - Weight decreased [Unknown]
  - Neuralgia [Unknown]
  - Asthenia [Unknown]
